FAERS Safety Report 4803528-5 (Version None)
Quarter: 2005Q4

REPORT INFORMATION
  Report Type: 
  Country: None (occurrence: None)
  Receive Date: 20051014
  Receipt Date: 20051005
  Transmission Date: 20060501
  Serious: Yes (Other)
  Sender: FDA-Public Use
  Company Number: 2005138179

PATIENT
  Age: 6 Year
  Sex: Male

DRUGS (1)
  1. GENOTROPIN [Suspect]
     Indication: BODY HEIGHT BELOW NORMAL
     Dosage: 0.5 MG (0.5 MG, DAILY), ORAL
     Route: 048
     Dates: start: 20031101

REACTIONS (3)
  - ASTHMA [None]
  - BRONCHITIS ACUTE [None]
  - INJECTION SITE PAIN [None]
